FAERS Safety Report 8019223-8 (Version None)
Quarter: 2012Q1

REPORT INFORMATION
  Report Type: 
  Country: None (occurrence: None)
  Receive Date: 20120103
  Receipt Date: 20111230
  Transmission Date: 20120608
  Serious: Yes (Other)
  Sender: FDA-Public Use
  Company Number: US-AMGEN-USASP2011069739

PATIENT
  Sex: Female

DRUGS (1)
  1. ENBREL [Suspect]
     Indication: RHEUMATOID ARTHRITIS
     Dosage: UNK
     Dates: start: 20111223

REACTIONS (5)
  - ARTHRALGIA [None]
  - TREMOR [None]
  - PARAESTHESIA [None]
  - MENORRHAGIA [None]
  - DYSPNOEA [None]
